FAERS Safety Report 20296647 (Version 3)
Quarter: 2022Q1

REPORT INFORMATION
  Report Type: Other
  Country: US (occurrence: US)
  Receive Date: 20220105
  Receipt Date: 20220315
  Transmission Date: 20220424
  Serious: No
  Sender: FDA-Public Use
  Company Number: US-NEUROCRINE BIOSCIENCES INC.-2021NBI07637

PATIENT

DRUGS (3)
  1. INGREZZA [Suspect]
     Active Substance: VALBENAZINE
     Indication: Tardive dyskinesia
     Dosage: 80 MILLIGRAM, QD
     Route: 048
     Dates: start: 20211209, end: 20211216
  2. INGREZZA [Suspect]
     Active Substance: VALBENAZINE
     Dosage: STARTER PACK, UNSPECIFIED DOSE
     Route: 048
     Dates: start: 20211202
  3. INGREZZA [Suspect]
     Active Substance: VALBENAZINE
     Dosage: 40 MILLIGRAM, QD
     Route: 048
     Dates: start: 20170713, end: 20170813

REACTIONS (1)
  - Feeling abnormal [Recovered/Resolved]
